FAERS Safety Report 13281759 (Version 1)
Quarter: 2017Q1

REPORT INFORMATION
  Report Type: Spontaneous
  Country: US (occurrence: US)
  Receive Date: 20170228
  Receipt Date: 20170228
  Transmission Date: 20170428
  Serious: Yes (Death)
  Sender: FDA-Public Use
  Company Number: None

PATIENT
  Age: 70 Year
  Sex: Male

DRUGS (21)
  1. DULERA [Concomitant]
     Active Substance: FORMOTEROL FUMARATE DIHYDRATE\MOMETASONE FUROATE
  2. MULTI VITAMIN [Concomitant]
     Active Substance: VITAMINS
  3. GABAPENTIN. [Concomitant]
     Active Substance: GABAPENTIN
  4. BUPROPN [Concomitant]
  5. FISH OIL [Concomitant]
     Active Substance: FISH OIL
  6. OXYBUTYNIN [Concomitant]
     Active Substance: OXYBUTYNIN
  7. PRADAXA [Concomitant]
     Active Substance: DABIGATRAN ETEXILATE MESYLATE
  8. PANTO [Concomitant]
     Active Substance: PANTOPRAZOLE SODIUM
  9. KETOCONAZOLE. [Concomitant]
     Active Substance: KETOCONAZOLE
  10. ASPIRIN. [Concomitant]
     Active Substance: ASPIRIN
  11. CITALOPRAM [Concomitant]
     Active Substance: CITALOPRAM HYDROBROMIDE
  12. TESTOPEL [Suspect]
     Active Substance: TESTOSTERONE
     Indication: TESTICULAR FAILURE
     Route: 058
     Dates: start: 20150103, end: 20170131
  13. NALTREXONE [Concomitant]
     Active Substance: NALTREXONE
  14. METOPROLOL TARTRATE. [Concomitant]
     Active Substance: METOPROLOL TARTRATE
  15. VITAMIN D [Concomitant]
     Active Substance: CHOLECALCIFEROL
  16. ALLOPURINOL. [Concomitant]
     Active Substance: ALLOPURINOL
  17. ASCORBIC [Concomitant]
  18. NASONEX [Concomitant]
     Active Substance: MOMETASONE FUROATE
  19. PRIMIDONE. [Concomitant]
     Active Substance: PRIMIDONE
  20. ATORVASTATIN [Concomitant]
     Active Substance: ATORVASTATIN
  21. QUINAPRIL. [Concomitant]
     Active Substance: QUINAPRIL

REACTIONS (1)
  - Death [None]

NARRATIVE: CASE EVENT DATE: 20170131
